FAERS Safety Report 4971381-5 (Version None)
Quarter: 2006Q2

REPORT INFORMATION
  Report Type: 
  Country: None (occurrence: None)
  Receive Date: 20060406
  Receipt Date: 20060320
  Transmission Date: 20061013
  Serious: Yes (Other)
  Sender: FDA-Public Use
  Company Number: FR_050706741

PATIENT
  Age: 61 Year
  Sex: Female

DRUGS (5)
  1. FORTEO [Suspect]
     Indication: OSTEOPOROSIS
     Dosage: 20 UG, DAILY (1/D), SUBCUTANEOUS
     Route: 058
     Dates: start: 20041023
  2. FORTEO PEN FORTEO PEN) PEN, DISPOSABLE [Concomitant]
  3. TAMOFEN [Concomitant]
  4. ARIMIDEX (ANASTROZOLE) TABLET [Concomitant]
  5. ATORVASTATIN CALCIUM [Concomitant]

REACTIONS (6)
  - BREAST CANCER [None]
  - CAROTID ARTERY ATHEROMA [None]
  - CONDITION AGGRAVATED [None]
  - HAEMORRHOIDS [None]
  - HYPERCHOLESTEROLAEMIA [None]
  - VENOUS THROMBOSIS [None]
